FAERS Safety Report 8261659-4 (Version None)
Quarter: 2012Q2

REPORT INFORMATION
  Report Type: 
  Country: None (occurrence: None)
  Receive Date: 20120405
  Receipt Date: 20120405
  Transmission Date: 20120825
  Serious: No
  Sender: FDA-Public Use
  Company Number: None

PATIENT
  Age: 56 Year
  Sex: Female
  Weight: 108.4 kg

DRUGS (2)
  1. LOSARTAN POTASSIUM AND HYDROCHLOROTHIAZIDE [Suspect]
     Indication: SWELLING FACE
     Dosage: 100-25
     Route: 048
     Dates: start: 20111003, end: 20111102
  2. LOSARTAN POTASSIUM AND HYDROCHLOROTHIAZIDE [Suspect]
     Indication: URTICARIA
     Dosage: 100-25
     Route: 048
     Dates: start: 20111003, end: 20111102

REACTIONS (3)
  - LIP SWELLING [None]
  - RASH PRURITIC [None]
  - PRODUCT SUBSTITUTION ISSUE [None]
